FAERS Safety Report 23526714 (Version 3)
Quarter: 2024Q1

REPORT INFORMATION
  Report Type: Spontaneous
  Country: US (occurrence: US)
  Receive Date: 20240215
  Receipt Date: 20240217
  Transmission Date: 20240409
  Serious: No
  Sender: FDA-Public Use
  Company Number: US-ABBVIE-5638922

PATIENT
  Sex: Female

DRUGS (1)
  1. ESTRACE [Suspect]
     Active Substance: ESTRADIOL
     Indication: Product used for unknown indication
     Route: 061

REACTIONS (4)
  - Pain [Unknown]
  - Adverse drug reaction [Unknown]
  - Allergic reaction to excipient [Unknown]
  - Product dispensing error [Unknown]
